FAERS Safety Report 5228642-4 (Version None)
Quarter: 2007Q1

REPORT INFORMATION
  Report Type: 
  Country: None (occurrence: None)
  Receive Date: 20070205
  Receipt Date: 20070201
  Transmission Date: 20070707
  Serious: Yes (Other)
  Sender: FDA-Public Use
  Company Number: US-GLAXOSMITHKLINE-A0631143A

PATIENT
  Sex: Female

DRUGS (3)
  1. REQUIP [Suspect]
     Indication: RESTLESS LEGS SYNDROME
     Dosage: .25MG PER DAY
     Route: 048
  2. CLONAZEPAM [Concomitant]
  3. ZOLOFT [Concomitant]

REACTIONS (6)
  - APHASIA [None]
  - CHILLS [None]
  - HYPERHIDROSIS [None]
  - MOOD ALTERED [None]
  - MOUTH ULCERATION [None]
  - TREMOR [None]
